FAERS Safety Report 11116977 (Version 1)
Quarter: 2015Q2

REPORT INFORMATION
  Report Type: Spontaneous
  Country: US (occurrence: US)
  Receive Date: 20150515
  Receipt Date: 20150515
  Transmission Date: 20150821
  Serious: Yes (Other)
  Sender: FDA-Public Use
  Company Number: US-GLAXOSMITHKLINE-US2015GSK064762

PATIENT
  Age: 45 Year
  Sex: Female

DRUGS (2)
  1. REVATIO [Concomitant]
     Active Substance: SILDENAFIL CITRATE
  2. FLOLAN [Suspect]
     Active Substance: EPOPROSTENOL SODIUM
     Indication: PULMONARY ARTERIAL HYPERTENSION
     Dosage: 72NG/KG/MIN; CONCENTRATION: 90,000NG/ML, RATE: 80 ML/DAY; CO
     Dates: start: 19880806

REACTIONS (3)
  - Thrombosis in device [Unknown]
  - Emergency care examination [Unknown]
  - Device occlusion [Unknown]

NARRATIVE: CASE EVENT DATE: 201505
